FAERS Safety Report 23394621 (Version 6)
Quarter: 2025Q1

REPORT INFORMATION
  Report Type: Other
  Country: CA (occurrence: CA)
  Receive Date: 20240112
  Receipt Date: 20250219
  Transmission Date: 20250408
  Serious: No
  Sender: TOLMAR
  Company Number: CA-TOLMAR, INC.-23CA045626

PATIENT
  Age: 81 Year
  Sex: Male

DRUGS (13)
  1. ELIGARD [Suspect]
     Active Substance: LEUPROLIDE ACETATE
     Indication: Prostate cancer
     Dosage: 22.5 MILLIGRAM, Q 3 MONTH
     Route: 058
     Dates: start: 20231219
  2. ELIGARD [Suspect]
     Active Substance: LEUPROLIDE ACETATE
     Dosage: 22.5 MILLIGRAM, Q 3 MONTH
     Route: 058
     Dates: start: 20240313
  3. ELIGARD [Suspect]
     Active Substance: LEUPROLIDE ACETATE
     Dosage: 22.5 MILLIGRAM, Q 3 MONTH
     Route: 058
     Dates: start: 20240604
  4. ELIGARD [Suspect]
     Active Substance: LEUPROLIDE ACETATE
     Dosage: 22.5 MILLIGRAM, Q 3 MONTH
     Route: 058
     Dates: start: 20240822
  5. ELIGARD [Suspect]
     Active Substance: LEUPROLIDE ACETATE
     Dosage: 22.5 MILLIGRAM, Q 3 MONTH
     Route: 058
     Dates: start: 20241112
  6. ELIGARD [Suspect]
     Active Substance: LEUPROLIDE ACETATE
     Dosage: 22.5 MILLIGRAM, Q 3 MONTH
     Route: 058
     Dates: start: 20250203
  7. ELIGARD [Suspect]
     Active Substance: LEUPROLIDE ACETATE
     Indication: Prostate cancer
  8. APALUTAMIDE [Suspect]
     Active Substance: APALUTAMIDE
     Indication: Product used for unknown indication
     Dosage: 240 MILLIGRAM, QD
     Dates: start: 20240212, end: 202405
  9. APALUTAMIDE [Suspect]
     Active Substance: APALUTAMIDE
     Dosage: 120 MILLIGRAM, QD (60 MG TWO TABLETS A DAY)
     Dates: start: 202406
  10. TINZAPARIN [Suspect]
     Active Substance: TINZAPARIN
     Indication: Thrombosis
     Dosage: 16,000 UNITS SUBCUTANEOUS ONCE DAILY, INJECTIONS
     Route: 058
  11. BICALUTAMIDE [Concomitant]
     Active Substance: BICALUTAMIDE
     Indication: Product used for unknown indication
     Route: 048
     Dates: start: 20241219
  12. CALCIUM [Concomitant]
     Active Substance: CALCIUM
     Indication: Product used for unknown indication
  13. VITAMIN D NOS [Concomitant]
     Active Substance: CHOLECALCIFEROL\ERGOCALCIFEROL
     Indication: Product used for unknown indication

REACTIONS (9)
  - Injection site haemorrhage [Recovered/Resolved]
  - Chills [Unknown]
  - Rash macular [Unknown]
  - Contusion [Unknown]
  - Fatigue [Unknown]
  - Asthenia [Unknown]
  - Muscle atrophy [Unknown]
  - Hot flush [Recovering/Resolving]
  - Dizziness [Unknown]

NARRATIVE: CASE EVENT DATE: 20231219
